FAERS Safety Report 8819770 (Version 2)
Quarter: 2014Q3

REPORT INFORMATION
  Report Type: Report from Study
  Country: US (occurrence: US)
  Receive Date: 20121001
  Receipt Date: 20140801
  Transmission Date: 20150326
  Serious: Yes (Death)
  Sender: FDA-Public Use
  Company Number: US-ROCHE-1103424

PATIENT
  Sex: Female

DRUGS (10)
  1. TAMOXIFEN [Concomitant]
     Active Substance: TAMOXIFEN
  2. 5-FU [Concomitant]
     Active Substance: FLUOROURACIL
  3. METHOTREXATE [Concomitant]
     Active Substance: METHOTREXATE
  4. TAXOL [Concomitant]
     Active Substance: PACLITAXEL
     Route: 065
     Dates: end: 19990611
  5. DECADRON [Concomitant]
     Active Substance: DEXAMETHASONE
  6. TAXOTERE [Concomitant]
     Active Substance: DOCETAXEL
  7. NAVELBINE [Concomitant]
     Active Substance: VINORELBINE TARTRATE
  8. HERCEPTIN [Suspect]
     Active Substance: TRASTUZUMAB
     Indication: BREAST CANCER FEMALE
     Dosage: RETREATMENT STARTED: 14/OCT/1999
     Route: 042
  9. CYTOXAN [Concomitant]
     Active Substance: CYCLOPHOSPHAMIDE
  10. ADRIAMYCIN [Concomitant]
     Active Substance: DOXORUBICIN HYDROCHLORIDE

REACTIONS (2)
  - Disease progression [Unknown]
  - Breast cancer [Fatal]
